FAERS Safety Report 6113738-5 (Version None)
Quarter: 2009Q1

REPORT INFORMATION
  Report Type: 
  Country: None (occurrence: None)
  Receive Date: 20090312
  Receipt Date: 20090303
  Transmission Date: 20090719
  Serious: Yes (Other)
  Sender: FDA-Public Use
  Company Number: US-TYCO HEALTHCARE/MALLINCKRODT-T200900607

PATIENT
  Sex: Female

DRUGS (1)
  1. MD-GASTROVIEW [Suspect]
     Indication: SCAN
     Dosage: UNK
     Route: 048

REACTIONS (4)
  - HEPATIC FAILURE [None]
  - MECHANICAL VENTILATION [None]
  - RENAL FAILURE [None]
  - SHOCK [None]
